FAERS Safety Report 21962006 (Version 2)
Quarter: 2023Q1

REPORT INFORMATION
  Report Type: Spontaneous
  Country: JP (occurrence: JP)
  Receive Date: 20230207
  Receipt Date: 20230213
  Transmission Date: 20230418
  Serious: Yes (Other)
  Sender: FDA-Public Use
  Company Number: JP-PFIZER INC-202300046635

PATIENT
  Sex: Female

DRUGS (3)
  1. HALCION [Suspect]
     Active Substance: TRIAZOLAM
     Indication: Insomnia
     Dosage: 0.25 MG
     Route: 048
  2. PRIMPERAN [Suspect]
     Active Substance: METOCLOPRAMIDE HYDROCHLORIDE
     Dosage: UNK
  3. LATUDA [Suspect]
     Active Substance: LURASIDONE HYDROCHLORIDE
     Dosage: UNK

REACTIONS (8)
  - Parkinson^s disease [Unknown]
  - Pruritus [Recovering/Resolving]
  - Akathisia [Unknown]
  - Drug ineffective [Unknown]
  - Back pain [Unknown]
  - Headache [Unknown]
  - Nasal congestion [Unknown]
  - Nasopharyngitis [Unknown]
